FAERS Safety Report 9903771 (Version 2)
Quarter: 2014Q1

REPORT INFORMATION
  Report Type: Spontaneous
  Country: US (occurrence: US)
  Receive Date: 20140218
  Receipt Date: 20140319
  Transmission Date: 20141002
  Serious: No
  Sender: FDA-Public Use
  Company Number: US-009507513-1402USA006950

PATIENT
  Sex: Male
  Weight: 79.37 kg

DRUGS (4)
  1. ASMANEX TWISTHALER [Suspect]
     Dosage: 220 MICROGRAM / 1 PUFF TWICE A DAY
     Route: 055
  2. SPIRIVA [Concomitant]
     Dosage: UNK
     Dates: start: 20130906
  3. SINGULAIR [Concomitant]
     Dosage: UNK
     Dates: start: 20120812
  4. SINGULAIR [Concomitant]
     Dosage: UNK
     Dates: start: 20120604

REACTIONS (3)
  - Incorrect dose administered [Unknown]
  - Product quality issue [Unknown]
  - No adverse event [Unknown]
